FAERS Safety Report 7638931-1 (Version None)
Quarter: 2011Q3

REPORT INFORMATION
  Report Type: 
  Country: None (occurrence: None)
  Receive Date: 20110721
  Receipt Date: 20110713
  Transmission Date: 20111222
  Serious: Yes (Hospitalization)
  Sender: FDA-Public Use
  Company Number: AMO-11-02

PATIENT
  Age: 67 Year
  Sex: Female

DRUGS (1)
  1. AMOXICILLIN [Suspect]
     Indication: URINARY TRACT INFECTION
     Dosage: 250MG/2X DAY

REACTIONS (7)
  - PAIN [None]
  - HAEMATOMA [None]
  - PLATELET COUNT DECREASED [None]
  - WOUND HAEMORRHAGE [None]
  - ROAD TRAFFIC ACCIDENT [None]
  - EPISTAXIS [None]
  - HAEMOGLOBIN DECREASED [None]
